FAERS Safety Report 10913933 (Version 2)
Quarter: 2015Q2

REPORT INFORMATION
  Report Type: Report from Study
  Country: US (occurrence: US)
  Receive Date: 20150313
  Receipt Date: 20150406
  Transmission Date: 20150821
  Serious: Yes (Other)
  Sender: FDA-Public Use
  Company Number: US-GILEAD-2015-0141416

PATIENT
  Age: 58 Year
  Sex: Male

DRUGS (9)
  1. ATENOLOL. [Concomitant]
     Active Substance: ATENOLOL
  2. VASOTEC [Concomitant]
     Active Substance: ENALAPRIL MALEATE
  3. ZANTAC [Concomitant]
     Active Substance: RANITIDINE HYDROCHLORIDE
  4. NICOTINE. [Concomitant]
     Active Substance: NICOTINE
  5. ASA [Concomitant]
     Active Substance: ASPIRIN
  6. RANOLAZINE [Suspect]
     Active Substance: RANOLAZINE
     Indication: ANGINA PECTORIS
     Dosage: 500 MG, UNK
     Route: 048
     Dates: start: 20140205
  7. IMDUR [Concomitant]
     Active Substance: ISOSORBIDE MONONITRATE
  8. GEMFIBROZIL. [Concomitant]
     Active Substance: GEMFIBROZIL
  9. PLAVIX [Concomitant]
     Active Substance: CLOPIDOGREL BISULFATE

REACTIONS (2)
  - Cardiac pacemaker insertion [Unknown]
  - Intentional product misuse [Unknown]

NARRATIVE: CASE EVENT DATE: 20140930
